FAERS Safety Report 4689657-8 (Version None)
Quarter: 2005Q2

REPORT INFORMATION
  Report Type: 
  Country: None (occurrence: None)
  Receive Date: 20050608
  Receipt Date: 20050308
  Transmission Date: 20051028
  Serious: No
  Sender: FDA-Public Use
  Company Number: 2005-BP-03742BP

PATIENT
  Sex: Female

DRUGS (8)
  1. SPIRIVA [Suspect]
     Indication: CHRONIC OBSTRUCTIVE PULMONARY DISEASE
     Dosage: 18 MCG (18 MCG, QD), IH
     Route: 055
     Dates: start: 20050225
  2. ADVAIR DISKUS 100/50 [Concomitant]
  3. ALBUTEROL NEBULIZER (SALBUTAMOL) [Concomitant]
  4. ALBUTEROL INHALER (SALBUTAMOL) [Concomitant]
  5. OXYGEN [Concomitant]
  6. PREDISONE [Concomitant]
  7. TOPROL-XL [Concomitant]
  8. SINGULAIR [Concomitant]

REACTIONS (2)
  - COUGH [None]
  - DYSPHONIA [None]
